FAERS Safety Report 4517520-1 (Version None)
Quarter: 2004Q4

REPORT INFORMATION
  Report Type: 
  Country: None (occurrence: None)
  Receive Date: 20041027
  Receipt Date: 20040723
  Transmission Date: 20050328
  Serious: No
  Sender: FDA-Public Use
  Company Number: US085965

PATIENT
  Age: 41 Year
  Sex: Female

DRUGS (16)
  1. SENSIPAR [Suspect]
     Indication: HYPERPARATHYROIDISM SECONDARY
     Dosage: 30 MG, 1 IN 1 DAYS, PO
     Route: 048
     Dates: start: 20040509, end: 20040524
  2. DEXTROPROPOXYPHENE [Concomitant]
  3. ACYCLOVIR [Concomitant]
  4. ALPRAZOLAM [Concomitant]
  5. ZOLPIDEM TARTRATE [Concomitant]
  6. PHOSLO [Concomitant]
  7. CARISOPRODOL [Concomitant]
  8. CLONAZEPAM [Concomitant]
  9. ALBUTEROL SULFATE [Concomitant]
  10. LIDOCAINE [Concomitant]
  11. ENALAPRIL [Concomitant]
  12. HYDROCODONE [Concomitant]
  13. LEVOFLOXACIN [Concomitant]
  14. QUININE [Concomitant]
  15. RANITIDINE [Concomitant]
  16. SEVELAMER HCL [Concomitant]

REACTIONS (1)
  - DEPRESSION [None]
